FAERS Safety Report 4788832-1 (Version None)
Quarter: 2005Q4

REPORT INFORMATION
  Report Type: 
  Country: None (occurrence: None)
  Receive Date: 20051004
  Receipt Date: 20050922
  Transmission Date: 20060501
  Serious: Yes (Hospitalization)
  Sender: FDA-Public Use
  Company Number: GXKR2005AU01674

PATIENT
  Age: 69 Year
  Sex: Female

DRUGS (5)
  1. VANCOMYCIN [Suspect]
     Indication: PNEUMONIA
     Dosage: 1500 MG, INTRAVENOUS
     Route: 042
  2. CIPROFLOXACIN [Suspect]
     Indication: PNEUMONIA
     Dosage: 600 MG, INTRAVENOUS
     Route: 042
  3. ASPIRIN [Concomitant]
  4. FUROSEMIDE [Concomitant]
  5. METOPROLOL TARTRATE [Concomitant]

REACTIONS (5)
  - BLISTER [None]
  - LINEAR IGA DISEASE [None]
  - MOUTH ULCERATION [None]
  - RASH ERYTHEMATOUS [None]
  - RASH MACULAR [None]
